FAERS Safety Report 5249278-5 (Version None)
Quarter: 2007Q1

REPORT INFORMATION
  Report Type: 
  Country: None (occurrence: None)
  Receive Date: 20070223
  Receipt Date: 20070212
  Transmission Date: 20070707
  Serious: Yes (Death)
  Sender: FDA-Public Use
  Company Number: S07-UKI-00796-01

PATIENT
  Sex: Female

DRUGS (6)
  1. CITALOPRAM HYDROBROMIDE [Suspect]
  2. PAROXETINE HCL [Suspect]
     Dosage: 20 MG UNK PO
     Route: 048
     Dates: start: 20010101, end: 20010101
  3. PAROXETINE HCL [Suspect]
     Dosage: 30 MG UNK PO
     Route: 048
     Dates: start: 20010101, end: 20011101
  4. PAROXETINE HCL [Suspect]
     Dosage: 15 MG QD PO
     Route: 048
     Dates: start: 20011101, end: 20010101
  5. PAROXETINE HCL [Suspect]
     Dosage: 30 MG QD PO
     Route: 048
     Dates: start: 20010101, end: 20020201
  6. VENLAFAXINE HCL [Concomitant]

REACTIONS (9)
  - ABORTION INDUCED [None]
  - APPETITE DISORDER [None]
  - COMPLETED SUICIDE [None]
  - DRUG EXPOSURE DURING PREGNANCY [None]
  - DRUG WITHDRAWAL SYNDROME [None]
  - IRRITABILITY [None]
  - OVERDOSE [None]
  - TEARFULNESS [None]
  - WEIGHT FLUCTUATION [None]
